FAERS Safety Report 23867499 (Version 2)
Quarter: 2024Q2

REPORT INFORMATION
  Report Type: Spontaneous
  Country: US (occurrence: US)
  Receive Date: 20240517
  Receipt Date: 20240520
  Transmission Date: 20240716
  Serious: No
  Sender: FDA-Public Use
  Company Number: US-PFIZER INC-202400108904

PATIENT
  Age: 67 Year
  Sex: Female

DRUGS (2)
  1. MEDROXYPROGESTERONE ACETATE [Suspect]
     Active Substance: MEDROXYPROGESTERONE ACETATE
     Indication: Endometrial hyperplasia
     Dosage: 10 MG, 1X/DAY
     Route: 048
  2. MEGESTROL ACETATE [Concomitant]
     Active Substance: MEGESTROL ACETATE
     Indication: Endometrial hyperplasia
     Dosage: 40 MG, 2X/DAY

REACTIONS (23)
  - Pain [Unknown]
  - Haemorrhage [Unknown]
  - Swelling of eyelid [Unknown]
  - Skin disorder [Unknown]
  - Dysphonia [Unknown]
  - Dizziness [Unknown]
  - Decreased appetite [Unknown]
  - Asthenia [Unknown]
  - Weight decreased [Unknown]
  - Hypersensitivity [Not Recovered/Not Resolved]
  - Blister [Unknown]
  - Vision blurred [Unknown]
  - Confusional state [Unknown]
  - Memory impairment [Unknown]
  - Disease recurrence [Unknown]
  - Skin exfoliation [Unknown]
  - Sunburn [Unknown]
  - Lip swelling [Unknown]
  - Fatigue [Unknown]
  - Influenza like illness [Unknown]
  - Blood glucose decreased [Unknown]
  - Periorbital swelling [Unknown]
  - COVID-19 [Unknown]

NARRATIVE: CASE EVENT DATE: 20231213
